FAERS Safety Report 16576394 (Version 1)
Quarter: 2019Q3

REPORT INFORMATION
  Report Type: Spontaneous
  Country: US (occurrence: US)
  Receive Date: 20190602
  Receipt Date: 20190602
  Transmission Date: 20191004
  Serious: No
  Sender: FDA-Public Use
  Company Number: None

PATIENT
  Age: 49 Year
  Sex: Male

DRUGS (1)
  1. LEVOFLOXACIN. [Suspect]
     Active Substance: LEVOFLOXACIN
     Indication: SINUSITIS
     Dosage: ?          OTHER DOSE:1 TAB;?
     Route: 048
     Dates: start: 20181210, end: 20181217

REACTIONS (4)
  - Hepatic enzyme increased [None]
  - Transaminases increased [None]
  - Jaundice [None]
  - Hyperbilirubinaemia [None]

NARRATIVE: CASE EVENT DATE: 20181221
